FAERS Safety Report 4269439-1 (Version None)
Quarter: 2004Q1

REPORT INFORMATION
  Report Type: 
  Country: None (occurrence: None)
  Receive Date: 20040112
  Receipt Date: 20040107
  Transmission Date: 20041129
  Serious: Yes (Death, Life-Threatening)
  Sender: FDA-Public Use
  Company Number: FRWYE496407JAN04

PATIENT
  Age: 60 Year
  Sex: Male

DRUGS (6)
  1. TAZOCILLINE (PIPERACILLIN/ TOBACTAM, INJECTION) [Suspect]
     Route: 042
     Dates: start: 20031126, end: 20031127
  2. CISPLATIN [Suspect]
     Indication: MESOTHELIOMA MALIGNANT
     Dosage: 145 MG 1X PER 1 CYC; 120 MG 1X PER 1 CYC
     Dates: start: 20031015, end: 20031015
  3. CISPLATIN [Suspect]
     Indication: MESOTHELIOMA MALIGNANT
     Dosage: 145 MG 1X PER 1 CYC; 120 MG 1X PER 1 CYC
     Dates: start: 20031114, end: 20031114
  4. GENTAMICIN SULFATE [Suspect]
     Dates: start: 20031126, end: 20031127
  5. PEMETREXED DISODIUM (PEMETREXED DISODIUM) [Suspect]
     Indication: MESOTHELIOMA MALIGNANT
     Dosage: 990 MG 1X PER 1 CYC; 940 MG 1X PER 1 CYC
     Dates: start: 20031015, end: 20031015
  6. PEMETREXED DISODIUM (PEMETREXED DISODIUM) [Suspect]
     Indication: MESOTHELIOMA MALIGNANT
     Dosage: 990 MG 1X PER 1 CYC; 940 MG 1X PER 1 CYC
     Dates: start: 20031114, end: 20031114

REACTIONS (2)
  - INFECTION [None]
  - NEUTROPENIA [None]
